FAERS Safety Report 19963694 (Version 1)
Quarter: 2021Q4

REPORT INFORMATION
  Report Type: Spontaneous
  Country: US (occurrence: US)
  Receive Date: 20211014
  Receipt Date: 20211014
  Transmission Date: 20220303
  Serious: Yes (Other)
  Sender: FDA-Public Use
  Company Number: None

PATIENT
  Age: 49 Year
  Sex: Female

DRUGS (1)
  1. COPAXONE [Suspect]
     Active Substance: GLATIRAMER ACETATE
     Dosage: ?          OTHER FREQUENCY:OTHER;
     Route: 058
     Dates: start: 2016

REACTIONS (4)
  - Chest pain [None]
  - Palpitations [None]
  - Pain in extremity [None]
  - Infection [None]

NARRATIVE: CASE EVENT DATE: 20210503
